FAERS Safety Report 19470940 (Version 6)
Quarter: 2025Q1

REPORT INFORMATION
  Report Type: Spontaneous
  Country: PT (occurrence: PT)
  Receive Date: 20210628
  Receipt Date: 20250121
  Transmission Date: 20250409
  Serious: Yes (Death, Hospitalization, Other)
  Sender: VERTEX
  Company Number: PT-VERTEX PHARMACEUTICALS-2021-009561

PATIENT
  Age: 24 Year
  Sex: Female

DRUGS (4)
  1. ELEXACAFTOR\IVACAFTOR\TEZACAFTOR [Suspect]
     Active Substance: ELEXACAFTOR\IVACAFTOR\TEZACAFTOR
     Indication: Cystic fibrosis
     Route: 048
     Dates: start: 20210311, end: 20210618
  2. PANCREATIN [Concomitant]
     Active Substance: PANCRELIPASE
  3. PULMOZYME [Concomitant]
     Active Substance: DORNASE ALFA
  4. PFIZER-BIONTECH COVID-19 VACCINE [Concomitant]
     Active Substance: TOZINAMERAN
     Dates: start: 20210522, end: 20210522

REACTIONS (13)
  - Rash [Recovered/Resolved]
  - Intracranial pressure increased [Fatal]
  - Budd-Chiari syndrome [Fatal]
  - Brain oedema [Fatal]
  - Pneumothorax [Unknown]
  - Coma [Recovered/Resolved]
  - Respiratory failure [Unknown]
  - Muscle necrosis [Not Recovered/Not Resolved]
  - Paraplegia [Not Recovered/Not Resolved]
  - Feeling abnormal [Unknown]
  - Depersonalisation/derealisation disorder [Unknown]
  - Neck pain [Unknown]
  - Dissociation [Unknown]

NARRATIVE: CASE EVENT DATE: 20210101
